FAERS Safety Report 4900233-1 (Version None)
Quarter: 2006Q1

REPORT INFORMATION
  Report Type: 
  Country: None (occurrence: None)
  Receive Date: 20060203
  Receipt Date: 20060120
  Transmission Date: 20060701
  Serious: Yes (Death, Other)
  Sender: FDA-Public Use
  Company Number: 2006AP00361

PATIENT
  Sex: Male

DRUGS (4)
  1. OMEPRAZOLE [Suspect]
     Route: 048
     Dates: start: 20051201
  2. PARIET [Concomitant]
     Dates: end: 20051201
  3. VITAMIN PREPARATIONS [Concomitant]
  4. STOMACHICS AND DIGESTIVES [Concomitant]

REACTIONS (2)
  - DRUG INEFFECTIVE [None]
  - HAEMATEMESIS [None]
